FAERS Safety Report 7250793-3 (Version None)
Quarter: 2011Q1

REPORT INFORMATION
  Report Type: 
  Country: None (occurrence: None)
  Receive Date: 20110128
  Receipt Date: 20110120
  Transmission Date: 20110831
  Serious: Yes (Hospitalization, Other)
  Sender: FDA-Public Use
  Company Number: GB-BRISTOL-MYERS SQUIBB COMPANY-15503360

PATIENT
  Sex: Male
  Weight: 72 kg

DRUGS (8)
  1. ARANESP [Suspect]
     Indication: RENAL FAILURE CHRONIC
     Dosage: 1DF=50 UNITS NOS,FROM MAY08 INITIAL DF=20 UNITS NOS,ROUTE:SC
     Route: 042
     Dates: start: 20071205, end: 20080610
  2. RAMIPRIL [Suspect]
     Route: 065
     Dates: end: 20080601
  3. PREDNISONE [Concomitant]
     Dates: start: 19970101
  4. FUROSEMIDE [Concomitant]
  5. ROSUVASTATIN CALCIUM [Concomitant]
  6. IRBESARTAN [Suspect]
     Route: 065
     Dates: end: 20080601
  7. TACROLIMUS [Concomitant]
  8. MYCOPHENOLATE MOFETIL [Concomitant]
     Dates: start: 19970101

REACTIONS (2)
  - APLASIA PURE RED CELL [None]
  - THERAPEUTIC RESPONSE DECREASED [None]
